FAERS Safety Report 12267545 (Version 2)
Quarter: 2016Q2

REPORT INFORMATION
  Report Type: Spontaneous
  Country: EG (occurrence: EG)
  Receive Date: 20160414
  Receipt Date: 20160516
  Transmission Date: 20160815
  Serious: Yes (Life-Threatening, Other)
  Sender: FDA-Public Use
  Company Number: PHHY2016EG048665

PATIENT
  Age: 60 Year
  Sex: Male

DRUGS (3)
  1. MONTEKAL [Suspect]
     Active Substance: MONTELUKAST SODIUM
     Indication: PRODUCT USED FOR UNKNOWN INDICATION
     Dosage: (MAINENANCE DOSE)
     Route: 048
  2. VENTAL COMP [Suspect]
     Active Substance: ALBUTEROL SULFATE\BECLOMETHASONE DIPROPIONATE
     Indication: PRODUCT USED FOR UNKNOWN INDICATION
     Dosage: (MAINENANCE DOSE)
     Route: 055
  3. FORADIL [Suspect]
     Active Substance: FORMOTEROL FUMARATE
     Indication: COUGH
     Dosage: 1 DF, TID (ABUSE UP TO 3 TIMES PER DAY
     Route: 055
     Dates: start: 201603, end: 201604

REACTIONS (6)
  - Left atrial dilatation [Unknown]
  - Mitral valve incompetence [Unknown]
  - Dyspnoea [Unknown]
  - Drug abuse [Unknown]
  - Atrial fibrillation [Recovering/Resolving]
  - Product use issue [Unknown]

NARRATIVE: CASE EVENT DATE: 20160410
